FAERS Safety Report 10307005 (Version 1)
Quarter: 2014Q3

REPORT INFORMATION
  Report Type: Spontaneous
  Country: JP (occurrence: JP)
  Receive Date: 20140715
  Receipt Date: 20140715
  Transmission Date: 20150326
  Serious: Yes (Other)
  Sender: FDA-Public Use
  Company Number: PHJP2014JP000950

PATIENT
  Age: 59 Year
  Sex: Male

DRUGS (1)
  1. TEGRETOL [Suspect]
     Active Substance: CARBAMAZEPINE
     Dosage: 200 MG, (DAILY)
     Route: 048
     Dates: start: 201110, end: 201111

REACTIONS (2)
  - Drug-induced liver injury [Unknown]
  - Erythema multiforme [Unknown]
